FAERS Safety Report 5317986-3 (Version None)
Quarter: 2007Q2

REPORT INFORMATION
  Report Type: 
  Country: None (occurrence: None)
  Receive Date: 20070507
  Receipt Date: 20070426
  Transmission Date: 20071010
  Serious: Yes (Other)
  Sender: FDA-Public Use
  Company Number: PHEH2007US05518

PATIENT
  Age: 58 Year
  Sex: Male

DRUGS (9)
  1. ZELNORM [Suspect]
     Indication: CROHN'S DISEASE
     Dosage: 6 MG, BID
     Route: 048
     Dates: start: 20040101, end: 20070413
  2. ZELNORM [Suspect]
     Dosage: 6 MG, QHS
     Route: 048
     Dates: start: 20070101, end: 20070413
  3. TOFRANIL [Suspect]
     Route: 048
     Dates: start: 20030101, end: 20040701
  4. BENTYL [Concomitant]
     Indication: CROHN'S DISEASE
     Route: 048
     Dates: start: 20040101
  5. CREON [Concomitant]
     Indication: CROHN'S DISEASE
     Route: 048
     Dates: start: 20040101
  6. LORTAB [Concomitant]
     Indication: PAIN
     Dosage: 7.5 MG, PRN
     Route: 048
     Dates: start: 20030101
  7. EFFEXOR [Concomitant]
     Indication: DEPRESSION
     Dosage: UNK, QD
     Route: 048
     Dates: start: 20061201
  8. MINIPRESS [Concomitant]
     Indication: PROSTATE EXAMINATION ABNORMAL
     Dosage: UNK, QD
     Route: 048
     Dates: start: 20000101
  9. REMICADE [Concomitant]
     Indication: CROHN'S DISEASE
     Dosage: EVERY 6 WEEKS
     Route: 048

REACTIONS (11)
  - ANGINA UNSTABLE [None]
  - BUNDLE BRANCH BLOCK [None]
  - CATHETERISATION CARDIAC [None]
  - CHEST PAIN [None]
  - CONDITION AGGRAVATED [None]
  - CORONARY ARTERY DISEASE [None]
  - DYSPNOEA [None]
  - ELECTROCARDIOGRAM ABNORMAL [None]
  - HEART RATE INCREASED [None]
  - INFLUENZA [None]
  - MYOCARDIAL INFARCTION [None]
